FAERS Safety Report 5339347-3 (Version None)
Quarter: 2007Q2

REPORT INFORMATION
  Report Type: 
  Country: None (occurrence: None)
  Receive Date: 20070322
  Receipt Date: 20070111
  Transmission Date: 20071010
  Serious: Yes (Other)
  Sender: FDA-Public Use
  Company Number: 200614765BCC

PATIENT
  Sex: Male

DRUGS (1)
  1. NAPROXEN [Suspect]
     Indication: DRUG USE FOR UNKNOWN INDICATION
     Dosage: 400 MG, ONCE, ORAL
     Route: 048
     Dates: start: 20050701

REACTIONS (7)
  - ANAPHYLACTIC REACTION [None]
  - HEART RATE [None]
  - OEDEMA PERIPHERAL [None]
  - PALATAL OEDEMA [None]
  - PRURITUS [None]
  - PRURITUS GENERALISED [None]
  - SWOLLEN TONGUE [None]
